FAERS Safety Report 8250480-9 (Version None)
Quarter: 2012Q2

REPORT INFORMATION
  Report Type: 
  Country: None (occurrence: None)
  Receive Date: 20120402
  Receipt Date: 20120402
  Transmission Date: 20120825
  Serious: Yes (Death)
  Sender: FDA-Public Use
  Company Number: None

PATIENT
  Age: 67 Year
  Sex: Female

DRUGS (1)
  1. AVASTIN [Suspect]
     Dosage: ONE DOSE @ 1.25 MG
     Route: 031
     Dates: start: 20111117, end: 20111117

REACTIONS (1)
  - DEATH [None]
